FAERS Safety Report 21341629 (Version 1)
Quarter: 2022Q3

REPORT INFORMATION
  Report Type: Spontaneous
  Country: US (occurrence: None)
  Receive Date: 20220915
  Receipt Date: 20220915
  Transmission Date: 20221027
  Serious: Yes (Hospitalization)
  Sender: FDA-Public Use
  Company Number: None

PATIENT
  Age: 69 Year
  Sex: Male
  Weight: 95.6 kg

DRUGS (8)
  1. YESCARTA [Suspect]
     Active Substance: AXICABTAGENE CILOLEUCEL
     Indication: Follicular lymphoma
     Dosage: FREQUENCY : ONCE;?
     Route: 041
     Dates: start: 20220526
  2. ACTEMRA [Concomitant]
     Active Substance: TOCILIZUMAB
     Dates: start: 20220530, end: 20220530
  3. anakinra (Kineret) subcutaneous injection [Concomitant]
     Dates: start: 20220531, end: 20220606
  4. dexAMETHasone (Decadron) injection [Concomitant]
     Dates: start: 20220529, end: 20220609
  5. levETIRAcetam (Keppra) 500 mg tablet [Concomitant]
     Dates: start: 20220525, end: 20220915
  6. lacosamide (Vimpat [Concomitant]
     Dates: start: 20220602, end: 20220624
  7. posaconazole (Noxafil) [Concomitant]
     Dates: start: 20220602, end: 20220610
  8. LEVOFLOXACIN [Concomitant]
     Active Substance: LEVOFLOXACIN
     Dates: start: 20220604, end: 20220611

REACTIONS (2)
  - Cytokine release syndrome [None]
  - Neurotoxicity [None]

NARRATIVE: CASE EVENT DATE: 20220526
